FAERS Safety Report 8744183 (Version 3)
Quarter: 2012Q4

REPORT INFORMATION
  Report Type: 
  Country: US (occurrence: US)
  Receive Date: 20120824
  Receipt Date: 20120917
  Transmission Date: 20130627
  Serious: No
  Sender: FDA-Public Use
  Company Number: US-ASTRAZENECA-2012SE59885

PATIENT
  Age: 52 Year
  Sex: Female

DRUGS (1)
  1. SYMBICORT PMDI [Suspect]
     Dosage: Unknown dose and frequency
     Route: 055

REACTIONS (3)
  - Dyspnoea [Unknown]
  - Lung infection [Unknown]
  - Drug dose omission [Unknown]
